FAERS Safety Report 23238489 (Version 1)
Quarter: 2023Q4

REPORT INFORMATION
  Report Type: Spontaneous
  Country: GB (occurrence: GB)
  Receive Date: 20231129
  Receipt Date: 20231129
  Transmission Date: 20240110
  Serious: Yes (Other)
  Sender: FDA-Public Use
  Company Number: None

PATIENT
  Age: 50 Year
  Sex: Female
  Weight: 49 kg

DRUGS (7)
  1. AZITHROMYCIN [Suspect]
     Active Substance: AZITHROMYCIN
     Indication: Mycobacterium avium complex infection
     Dosage: UNK
     Route: 065
     Dates: start: 20210319, end: 20210503
  2. AZITHROMYCIN [Suspect]
     Active Substance: AZITHROMYCIN
     Dosage: 250 MILLIGRAM, QD (1 DAY, CUMULATIVE DOSE 159239.58 MG)
     Route: 065
     Dates: start: 20211118
  3. AZITHROMYCIN [Suspect]
     Active Substance: AZITHROMYCIN
     Dosage: 500 MILLIGRAM, QD (1 DAY, CUMULATIVE DOSE 224500.0 MG)
     Route: 048
     Dates: start: 20220525, end: 20220714
  4. AZITHROMYCIN [Suspect]
     Active Substance: AZITHROMYCIN
     Dosage: 500 MILLIGRAM, QD (1-DAY, CUMULATIVE DOSE 73979.164 MG)
     Route: 048
     Dates: start: 20230322, end: 20230906
  5. LINEZOLID [Suspect]
     Active Substance: LINEZOLID
     Indication: Mycobacterium avium complex infection
     Dosage: 600 MILLIGRAM, QD (1 DAY)
     Route: 048
     Dates: start: 20230907, end: 20231006
  6. BEDAQUILINE [Suspect]
     Active Substance: BEDAQUILINE
     Indication: Mycobacterium avium complex infection
     Dosage: 200 MILLIGRAM (0.3 WEEK)
     Route: 048
     Dates: start: 20230322, end: 20231006
  7. CLOFAZIMINE [Suspect]
     Active Substance: CLOFAZIMINE
     Indication: Mycobacterium avium complex infection
     Dosage: 100 MILLIGRAM, QD (1 DAY)
     Route: 048
     Dates: start: 20230322, end: 20231006

REACTIONS (6)
  - Electrocardiogram QT prolonged [Unknown]
  - Hepatotoxicity [Unknown]
  - Hypoacusis [Unknown]
  - Skin discolouration [Unknown]
  - Diarrhoea [Unknown]
  - Hypertransaminasaemia [Recovered/Resolved]

NARRATIVE: CASE EVENT DATE: 20230817
